FAERS Safety Report 5123182-5 (Version None)
Quarter: 2006Q4

REPORT INFORMATION
  Report Type: 
  Country: None (occurrence: None)
  Receive Date: 20061005
  Receipt Date: 20060914
  Transmission Date: 20070319
  Serious: Yes (Hospitalization, Other)
  Sender: FDA-Public Use
  Company Number: 2006087283

PATIENT
  Age: 17 Year
  Sex: Female
  Weight: 50 kg

DRUGS (5)
  1. SALAZOPYRIN                         (SULFASALAZINE) [Suspect]
     Indication: CROHN'S DISEASE
     Dosage: 2 GRAM (500 MG, 1 IN 1 D), ORAL
     Route: 048
     Dates: start: 20060601, end: 20060706
  2. ENBREL [Suspect]
     Indication: POLYARTERITIS NODOSA
     Dosage: 50 MG (25 MG, 2 IN 1 WK), SUBCUTANEOUS
     Route: 058
     Dates: start: 20060301
  3. PREDNISOLONE [Concomitant]
  4. FOLIC ACID [Concomitant]
  5. DEXAMETHASONE [Concomitant]

REACTIONS (6)
  - DRUG INTERACTION [None]
  - FATIGUE [None]
  - LEUKOPENIA [None]
  - NEUTROPENIA [None]
  - PYREXIA [None]
  - STOMATITIS [None]
